FAERS Safety Report 5182672-X (Version None)
Quarter: 2006Q4

REPORT INFORMATION
  Report Type: 
  Country: None (occurrence: None)
  Receive Date: 20061220
  Receipt Date: 20061129
  Transmission Date: 20070319
  Serious: Yes (Hospitalization)
  Sender: FDA-Public Use
  Company Number: CO-BRISTOL-MYERS SQUIBB COMPANY-13592456

PATIENT
  Sex: Female

DRUGS (3)
  1. COUMADIN [Suspect]
     Indication: PULMONARY EMBOLISM
     Dosage: 1 AND 1/4 TABLET DAILY
  2. GLUCOPHAGE [Concomitant]
  3. NEURONTIN [Concomitant]

REACTIONS (3)
  - BRONCHOSPASM [None]
  - INTERNATIONAL NORMALISED RATIO ABNORMAL [None]
  - RESPIRATORY ARREST [None]
